FAERS Safety Report 9365879 (Version 1)
Quarter: 2013Q2

REPORT INFORMATION
  Report Type: Spontaneous
  Country: IL (occurrence: IL)
  Receive Date: 20130625
  Receipt Date: 20130625
  Transmission Date: 20140414
  Serious: Yes (Hospitalization, Other)
  Sender: FDA-Public Use
  Company Number: PHHY2013IL062039

PATIENT
  Age: 9 Month
  Sex: Female

DRUGS (6)
  1. OCTREOTIDE [Suspect]
     Indication: HYPERINSULINISM
     Dosage: 9 UG/KG/DAY
  2. OCTREOTIDE [Suspect]
     Dosage: 9.9 UG/KG/DAY
  3. OCTREOTIDE [Suspect]
     Dosage: 12 UG/KG/DAY
  4. DIAZOXIDE [Concomitant]
  5. GLUCAGON [Concomitant]
     Route: 058
  6. GLUCOSE [Concomitant]
     Route: 042

REACTIONS (7)
  - Upper respiratory tract infection [Unknown]
  - Gastroenteritis rotavirus [Unknown]
  - Hepatitis [Unknown]
  - Gamma-glutamyltransferase [Unknown]
  - Blood alkaline phosphatase [Unknown]
  - Pyrexia [Unknown]
  - Hypothyroidism [Unknown]
